FAERS Safety Report 7905677-1 (Version None)
Quarter: 2011Q4

REPORT INFORMATION
  Report Type: 
  Country: None (occurrence: None)
  Receive Date: 20111110
  Receipt Date: 20111101
  Transmission Date: 20120403
  Serious: Yes (Hospitalization)
  Sender: FDA-Public Use
  Company Number: ES-PAR PHARMACEUTICAL, INC-2011SCPR003398

PATIENT

DRUGS (5)
  1. AMOXYCILLIN                        /00249601/ [Concomitant]
     Indication: EAR INFECTION
     Dosage: 3 ORAL DOSES OF 500 MG DAILY
     Route: 048
  2. IBUPROFEN [Suspect]
     Indication: EAR PAIN
     Dosage: 400 MG, UNKNOWN
     Route: 065
     Dates: start: 20090401
  3. IBUPROFEN [Suspect]
     Indication: MYALGIA
     Dosage: 600 MG, UNKNOWN
     Route: 048
     Dates: start: 20100301
  4. IBUPROFEN [Suspect]
     Dosage: 5 MG/ML, UNKNOWN
     Route: 023
  5. IBUPROFEN [Suspect]
     Dosage: 50 MG, SINGLE DOSE
     Route: 065
     Dates: start: 20100820

REACTIONS (3)
  - MENINGITIS ASEPTIC [None]
  - ENCEPHALITIS [None]
  - DRUG HYPERSENSITIVITY [None]
